FAERS Safety Report 14680699 (Version 1)
Quarter: 2018Q1

REPORT INFORMATION
  Report Type: Spontaneous
  Country: US (occurrence: US)
  Receive Date: 20180324
  Receipt Date: 20180324
  Transmission Date: 20180509
  Serious: No
  Sender: FDA-Public Use
  Company Number: None

PATIENT
  Age: 47 Year
  Sex: Female

DRUGS (18)
  1. ZOLPIDEM [Concomitant]
     Active Substance: ZOLPIDEM\ZOLPIDEM TARTRATE
  2. ESOMEPRAZOLE [Concomitant]
     Active Substance: ESOMEPRAZOLE
  3. PROMETHAZINE [Concomitant]
     Active Substance: PROMETHAZINE\PROMETHAZINE HYDROCHLORIDE
  4. NITROGLYCERIN. [Concomitant]
     Active Substance: NITROGLYCERIN
  5. ATROPINE. [Concomitant]
     Active Substance: ATROPINE
  6. CAMPTOSAR [Concomitant]
     Active Substance: IRINOTECAN HYDROCHLORIDE
  7. ONDANSETRON [Concomitant]
     Active Substance: ONDANSETRON
  8. PILOCARPINE. [Concomitant]
     Active Substance: PILOCARPINE
  9. LORAZEPAM. [Concomitant]
     Active Substance: LORAZEPAM
  10. EMEND [Concomitant]
     Active Substance: APREPITANT
  11. DIPHENOXYLATE-ATROPINE [Concomitant]
     Active Substance: ATROPINE\DIPHENOXYLATE
  12. LONSURF [Suspect]
     Active Substance: TIPIRACIL HYDROCHLORIDE\TRIFLURIDINE
     Indication: COLON CANCER
     Dosage: 3 TABS BID DAYS 1-5+8-12 ORAL
     Route: 048
     Dates: start: 20180223
  13. DRONABINOL. [Concomitant]
     Active Substance: DRONABINOL
  14. CHOLECALCIFEROL [Concomitant]
     Active Substance: CHOLECALCIFEROL
  15. BUTALBITAL [Concomitant]
     Active Substance: BUTALBITAL
  16. FLUOROURACIL. [Concomitant]
     Active Substance: FLUOROURACIL
  17. LEUCOVORIN. [Concomitant]
     Active Substance: LEUCOVORIN
  18. SCOPOLAMINE [Concomitant]
     Active Substance: SCOPOLAMINE

REACTIONS (2)
  - Diarrhoea [None]
  - Nausea [None]

NARRATIVE: CASE EVENT DATE: 20180321
